FAERS Safety Report 15355303 (Version 1)
Quarter: 2018Q3

REPORT INFORMATION
  Report Type: Spontaneous
  Country: US (occurrence: US)
  Receive Date: 20180830
  Receipt Date: 20180830
  Transmission Date: 20181010
  Serious: Yes (Hospitalization, Other)
  Sender: FDA-Public Use
  Company Number: None

PATIENT
  Age: 21 Year
  Sex: Female
  Weight: 77.4 kg

DRUGS (2)
  1. LAMICTAL [Suspect]
     Active Substance: LAMOTRIGINE
     Indication: AFFECTIVE DISORDER
     Dosage: ?          QUANTITY:1 TABLET(S);?
     Route: 048
     Dates: start: 20180718, end: 20180811
  2. BIOTIN [Concomitant]
     Active Substance: BIOTIN

REACTIONS (4)
  - Therapy change [None]
  - Rash [None]
  - Pyrexia [None]
  - Eye disorder [None]

NARRATIVE: CASE EVENT DATE: 20180815
